FAERS Safety Report 4994988-8 (Version None)
Quarter: 2006Q2

REPORT INFORMATION
  Report Type: 
  Country: None (occurrence: None)
  Receive Date: 20060503
  Receipt Date: 20060420
  Transmission Date: 20061013
  Serious: Yes (Other)
  Sender: FDA-Public Use
  Company Number: ENTC2006-0097

PATIENT
  Age: 69 Year
  Sex: Female

DRUGS (3)
  1. STALEVO 100 [Suspect]
     Dosage: 100/25/200 MG X 4 ORAL
     Route: 048
  2. REQUIP [Concomitant]
  3. MODAFINIL [Concomitant]

REACTIONS (2)
  - ATRIAL FIBRILLATION [None]
  - HYPOTENSION [None]
